FAERS Safety Report 7994732 (Version 10)
Quarter: 2013Q4

REPORT INFORMATION
  Report Type: Report from Study
  Country: CH (occurrence: CH)
  Receive Date: 20110616
  Receipt Date: 20131202
  Transmission Date: 20140711
  Serious: Yes (Hospitalization)
  Sender: FDA-Public Use
  Company Number: CH-UCBSA-034390

PATIENT
  Age: 73 Year
  Sex: Male
  Weight: 86 kg

DRUGS (18)
  1. NEUPRO [Suspect]
     Indication: PARKINSON^S DISEASE
     Dates: start: 20100804, end: 20120806
  2. NEUPRO [Suspect]
     Indication: PARKINSON^S DISEASE
     Dates: start: 20100428, end: 20100803
  3. NEUPRO [Suspect]
     Indication: PARKINSON^S DISEASE
     Dates: start: 20100420, end: 20100427
  4. MADOPAR DR [Concomitant]
     Indication: PARKINSON^S DISEASE
     Dates: start: 20050929, end: 20051006
  5. MADOPAR DR [Concomitant]
     Indication: PARKINSON^S DISEASE
     Dosage: 250 MG, 2 1/2 TBL
     Dates: start: 20051007, end: 20051014
  6. MADOPAR DR [Concomitant]
     Indication: PARKINSON^S DISEASE
     Dates: start: 20051015, end: 20090424
  7. MADOPAR DR [Concomitant]
     Indication: PARKINSON^S DISEASE
     Dates: start: 20090425, end: 201010
  8. MADOPAR DR [Concomitant]
     Indication: PARKINSON^S DISEASE
     Dates: start: 201010, end: 20110729
  9. MADOPAR DR [Concomitant]
     Indication: PARKINSON^S DISEASE
     Dates: start: 20110730
  10. MADOPAR DR [Concomitant]
     Indication: PARKINSON^S DISEASE
     Dosage: STRENGTH: 250 MG,OTHER 1/2 TABLET
     Dates: start: 20120206
  11. TASMAR [Concomitant]
     Indication: PARKINSON^S DISEASE
     Dates: start: 20110228, end: 20120628
  12. TASMAR [Concomitant]
     Indication: PARKINSON^S DISEASE
     Dates: start: 20120629
  13. NIMOTOP [Concomitant]
     Indication: HYPERTENSION
     Dates: start: 20110519
  14. NIMOTOP [Concomitant]
     Indication: HYPERTENSION
     Dates: end: 20110518
  15. CLAROPRAM [Concomitant]
     Indication: DEPRESSION
  16. METO ZEROC [Concomitant]
     Indication: HYPERTENSION
     Dates: end: 20110629
  17. TEMESTA [Concomitant]
     Indication: ANXIETY
     Dosage: 1 MG, IF REQUIRED
  18. CETRIN [Concomitant]
     Indication: HYPERSENSITIVITY

REACTIONS (2)
  - Diarrhoea [Recovered/Resolved]
  - Coeliac disease [Not Recovered/Not Resolved]
